FAERS Safety Report 6531517-1 (Version None)
Quarter: 2009Q4

REPORT INFORMATION
  Report Type: 
  Country: None (occurrence: None)
  Receive Date: 20091222
  Receipt Date: 20091011
  Transmission Date: 20100525
  Serious: No
  Sender: FDA-Public Use
  Company Number: ALL1-2009-03172

PATIENT
  Age: 52 Year
  Sex: Female
  Weight: 52.6 kg

DRUGS (4)
  1. VYVANSE [Suspect]
     Indication: ATTENTION DEFICIT/HYPERACTIVITY DISORDER
     Dosage: 30 MG, 1X/DAY:QD, ORAL
     Route: 048
     Dates: start: 20091009
  2. TRAZODONE HCL [Concomitant]
  3. PERCOCET [Concomitant]
  4. CYMBALTA [Concomitant]

REACTIONS (1)
  - BACK PAIN [None]
